FAERS Safety Report 7548561-8 (Version None)
Quarter: 2011Q2

REPORT INFORMATION
  Report Type: 
  Country: None (occurrence: None)
  Receive Date: 20110615
  Receipt Date: 20110607
  Transmission Date: 20111010
  Serious: Yes (Other)
  Sender: FDA-Public Use
  Company Number: ES-ROXANE LABORATORIES, INC.-2011-RO-00782RO

PATIENT
  Age: 54 Year
  Sex: Male

DRUGS (17)
  1. LENALIDOMIDE [Suspect]
     Indication: MULTIPLE MYELOMA
     Dosage: 25 MG
  2. LENALIDOMIDE [Suspect]
     Dosage: 15 MG
  3. ZOLEDRONIC ACID [Suspect]
     Indication: MULTIPLE MYELOMA
  4. MELPHALAN HYDROCHLORIDE [Suspect]
     Indication: MULTIPLE MYELOMA
  5. MELPHALAN HYDROCHLORIDE [Suspect]
     Dates: start: 20061101
  6. ASPIRIN [Suspect]
     Indication: THROMBOSIS PROPHYLAXIS
  7. CYCLOPHOSPHAMIDE [Suspect]
     Indication: MULTIPLE MYELOMA
  8. PREDNISONE [Suspect]
     Indication: MULTIPLE MYELOMA
  9. VINCRISTINE [Suspect]
     Indication: MULTIPLE MYELOMA
  10. CARMUSTINE [Suspect]
     Indication: MULTIPLE MYELOMA
  11. DOXORUBICIN HCL [Suspect]
     Indication: MULTIPLE MYELOMA
  12. INTERFERON [Suspect]
     Indication: MULTIPLE MYELOMA
     Dates: end: 20080401
  13. HEPARIN [Suspect]
     Indication: THROMBOSIS PROPHYLAXIS
  14. DEXAMETHASONE [Suspect]
     Indication: MULTIPLE MYELOMA
  15. DEXAMETHASONE [Suspect]
     Dates: start: 20080401
  16. DEXAMETHASONE [Suspect]
  17. ZOLEDRONIC ACID [Suspect]

REACTIONS (7)
  - DISEASE PROGRESSION [None]
  - THROMBOCYTOPENIA [None]
  - MYOPATHY [None]
  - RESPIRATORY TRACT INFECTION [None]
  - ASTHENIA [None]
  - HYPERGLYCAEMIA [None]
  - ANAEMIA [None]
